FAERS Safety Report 4667102-6 (Version None)
Quarter: 2005Q2

REPORT INFORMATION
  Report Type: 
  Country: None (occurrence: None)
  Receive Date: 20050520
  Receipt Date: 20050322
  Transmission Date: 20051028
  Serious: Yes (Hospitalization)
  Sender: FDA-Public Use
  Company Number: JP-SP-2005-00668

PATIENT
  Age: 77 Year
  Sex: Female

DRUGS (1)
  1. IMMUCYST [Suspect]
     Indication: BLADDER CANCER
     Route: 043
     Dates: start: 20050126, end: 20050311

REACTIONS (6)
  - ARTHRALGIA [None]
  - MALIGNANT NEOPLASM PROGRESSION [None]
  - OCULAR HYPERAEMIA [None]
  - PYREXIA [None]
  - PYURIA [None]
  - REITER'S SYNDROME [None]
